FAERS Safety Report 4428577-0 (Version None)
Quarter: 2004Q3

REPORT INFORMATION
  Report Type: 
  Country: None (occurrence: None)
  Receive Date: 20040811
  Receipt Date: 20040802
  Transmission Date: 20050211
  Serious: Yes (Life-Threatening, Hospitalization)
  Sender: FDA-Public Use
  Company Number: THYM-10228

PATIENT
  Age: 33 Year

DRUGS (27)
  1. THYMOGLOBULIN [Suspect]
     Indication: GRAFT VERSUS HOST DISEASE
     Dosage: 1.5 MG/KG QD IV
     Route: 042
     Dates: start: 20030410, end: 20030413
  2. CALCIUM GLUCONATE [Concomitant]
  3. UNSPECIFIED INTRAVENOUS IMMUNOGLOBULIN [Concomitant]
  4. PENTAM [Concomitant]
  5. CANCIDAS [Concomitant]
  6. PROCRIT [Concomitant]
  7. AMBISOME [Concomitant]
  8. TACROLIMUS [Concomitant]
  9. MEROPENEM [Concomitant]
  10. VANCOMYCIN [Concomitant]
  11. FOSCARNET [Concomitant]
  12. MEDROL [Concomitant]
  13. NORVASC [Concomitant]
  14. AMILORIDE [Concomitant]
  15. ACTIGALL [Concomitant]
  16. FOLIC ACID [Concomitant]
  17. CARAFATE [Concomitant]
  18. M.V.I. [Concomitant]
  19. CLONIDINE HCL [Concomitant]
  20. DILAUDID [Concomitant]
  21. ZOFRAN [Concomitant]
  22. INSULIN [Concomitant]
  23. ATARAX [Concomitant]
  24. TRIAMCINOLONE [Concomitant]
  25. HYDROCORTISONE [Concomitant]
  26. NITROGLYCERIN [Concomitant]
  27. MAGNESIUM OXIDE [Concomitant]

REACTIONS (27)
  - ABDOMINAL PAIN [None]
  - ATELECTASIS [None]
  - BLOOD ALBUMIN DECREASED [None]
  - BLOOD CREATINE PHOSPHOKINASE INCREASED [None]
  - BLOOD LACTATE DEHYDROGENASE INCREASED [None]
  - BLOOD POTASSIUM DECREASED [None]
  - BLOOD UREA INCREASED [None]
  - EJECTION FRACTION DECREASED [None]
  - FUNGAL INFECTION [None]
  - HAEMATOCRIT DECREASED [None]
  - HAEMOGLOBIN DECREASED [None]
  - LYMPHOCYTE PERCENTAGE DECREASED [None]
  - MONOCYTE PERCENTAGE DECREASED [None]
  - MYOCARDIAL INFARCTION [None]
  - MYOCARDITIS [None]
  - NAUSEA [None]
  - NEUTROPHIL PERCENTAGE INCREASED [None]
  - OEDEMA PERIPHERAL [None]
  - PERICARDIAL EFFUSION [None]
  - PLATELET COUNT DECREASED [None]
  - PLEURAL EFFUSION [None]
  - PNEUMONIA [None]
  - SPUTUM CULTURE POSITIVE [None]
  - VASOSPASM [None]
  - VENTRICULAR EXTRASYSTOLES [None]
  - VENTRICULAR HYPERTROPHY [None]
  - WHITE BLOOD CELL COUNT DECREASED [None]
